FAERS Safety Report 13351758 (Version 2)
Quarter: 2017Q1

REPORT INFORMATION
  Report Type: Report from Study
  Country: CA (occurrence: CA)
  Receive Date: 20170320
  Receipt Date: 20170328
  Transmission Date: 20170429
  Serious: Yes (Hospitalization, Other)
  Sender: FDA-Public Use
  Company Number: CA-GILEAD-2017-0261330

PATIENT
  Age: 58 Year
  Sex: Female

DRUGS (4)
  1. IBAVYR [Concomitant]
     Active Substance: RIBAVIRIN
     Indication: CHRONIC HEPATITIS C
     Dosage: 1000 MG, UNK
     Route: 048
     Dates: start: 20170218
  2. SOFOSBUVIR W/VELPATASVIR [Suspect]
     Active Substance: SOFOSBUVIR\VELPATASVIR
     Indication: CHRONIC HEPATITIS C
     Dosage: 1 DF, UNK
     Route: 048
     Dates: start: 20170218
  3. IBAVYR [Concomitant]
     Active Substance: RIBAVIRIN
     Dosage: 400 MG, BID
     Route: 048
  4. IBAVYR [Concomitant]
     Active Substance: RIBAVIRIN
     Dosage: 200 MG, BID
     Route: 048

REACTIONS (4)
  - Vomiting [Unknown]
  - Hepatic encephalopathy [Unknown]
  - Haemoglobin decreased [Unknown]
  - Constipation [Not Recovered/Not Resolved]

NARRATIVE: CASE EVENT DATE: 20170303
